FAERS Safety Report 8911696 (Version 1)
Quarter: 2012Q4

REPORT INFORMATION
  Report Type: 
  Country: US (occurrence: US)
  Receive Date: 20121116
  Receipt Date: 20121116
  Transmission Date: 20130627
  Serious: Yes (Hospitalization)
  Sender: FDA-Public Use
  Company Number: US-BAYER-2012-117947

PATIENT
  Age: 49 Year
  Sex: Female
  Weight: 56.8 kg

DRUGS (31)
  1. YAZ [Suspect]
  2. GIANVI [Suspect]
  3. YASMIN [Suspect]
  4. OCELLA [Suspect]
  5. PREDNISONE [Concomitant]
     Dosage: 10 mg tablets Take 3 tablets daily [times] one week; Take 2 tablets daily [times] one week; Take 1 t
     Route: 048
  6. SERTRALINE [Concomitant]
     Dosage: 100 mg, Take 1 and ? tablet
  7. ALPRAZOLAM [Concomitant]
     Indication: ANXIETY
     Dosage: 0.5 mg, Take 1 tablet twice daily as needed, 3 times daily as needed
     Route: 048
  8. LORAZEPAM [Concomitant]
     Indication: ANXIETY
     Dosage: 0.5 mg, tab one tablet/capsule twice daily
     Route: 048
  9. AMBIEN [Concomitant]
     Dosage: 10 mg, HS as needed
     Route: 048
  10. ZOLPIDEM [Concomitant]
     Dosage: 10 mg, HS as needed
     Route: 048
  11. TOPAMAX [Concomitant]
     Dosage: 100 mg, every pm
     Route: 048
  12. DESONIDE [Concomitant]
     Dosage: 60 mg,Apply twice daily as needed, taper off with improvement
     Route: 061
  13. HYDROXYZINE HCL [Concomitant]
     Indication: ITCHING
     Dosage: 25 mg, Take 1 tablet every evening as needed
     Route: 048
  14. MATZIM LA [Concomitant]
     Indication: HYPERTENSION
     Dosage: 360 mg tablets Take one tablet daily
     Route: 048
  15. MONTELUKAST [Concomitant]
     Dosage: 10 mg, HS
     Route: 048
  16. FLUOROURACIL [Concomitant]
     Dosage: 40 g, Apply twice daily for 2 weeks, will cause irritation of skin
     Route: 061
  17. IBUPROFEN [Concomitant]
     Dosage: 400 mg TID
     Route: 048
  18. OXYCODONE W/PARACETAMOL [Concomitant]
     Indication: PAIN
     Dosage: 10-650 mg Take 1 tablet every 6-8 hours as needed
     Route: 048
  19. HYDROCHLOROTHIAZIDE [Concomitant]
     Indication: HYPERTENSION
     Dosage: 37.5/25 mg Take one tablet daily
     Route: 048
  20. TRIAMTERENE [Concomitant]
     Indication: HYPERTENSION
     Dosage: 37.5/25 mg Take one tablet daily
     Route: 048
  21. IBANDRONATE SODIUM [Concomitant]
     Dosage: 150 mg, Take 1 tablet monthly
     Route: 048
  22. BENAZEPRIL W/HYDROCHLOROTHIAZIDE [Concomitant]
     Dosage: 10/12.5 mg tablets Take 1 tablet every day
     Route: 048
  23. METOPROLOL SUCCINATE [Concomitant]
     Indication: HYPERTENSION
     Dosage: 25 mg, Take 1 tablet every day
     Route: 048
  24. PROAIR INHALER [Concomitant]
     Indication: WHEEZING
     Dosage: 8.5 g, 2 puffs every 4-6 hours
  25. DILTIAZEM [Concomitant]
     Dosage: 360 mg, UNK
     Route: 048
  26. NASONEX [Concomitant]
     Dosage: 2 sprays each nostril daily
     Route: 045
  27. ATROVENT [Concomitant]
     Dosage: 2 sprays each nostril 2-3 times daily
     Route: 045
  28. FLEXERIL [Concomitant]
     Dosage: 10 mg, HS
  29. LODINE [Concomitant]
     Dosage: 400 mg, BID
  30. LODRANE 12 HOUR [Concomitant]
     Dosage: 6 mg, BID prn
  31. ALLERGY INJECTIONS [Concomitant]
     Dosage: monthly

REACTIONS (1)
  - Pulmonary embolism [None]
